FAERS Safety Report 7719807-8 (Version None)
Quarter: 2011Q3

REPORT INFORMATION
  Report Type: 
  Country: None (occurrence: None)
  Receive Date: 20110831
  Receipt Date: 20110822
  Transmission Date: 20111222
  Serious: No
  Sender: FDA-Public Use
  Company Number: US-BIOGENIDEC-2011BI016531

PATIENT
  Age: 52 Year
  Sex: Female

DRUGS (2)
  1. AVONEX [Concomitant]
     Indication: MULTIPLE SCLEROSIS
     Route: 030
  2. TYSABRI [Suspect]
     Indication: MULTIPLE SCLEROSIS
     Route: 042
     Dates: start: 20110405

REACTIONS (9)
  - INFUSION SITE COLDNESS [None]
  - PYREXIA [None]
  - CHILLS [None]
  - MUSCLE SPASMS [None]
  - TREMOR [None]
  - ARTHRALGIA [None]
  - INCORRECT DRUG ADMINISTRATION RATE [None]
  - BONE PAIN [None]
  - PAIN IN EXTREMITY [None]
